FAERS Safety Report 9704303 (Version 1)
Quarter: 2013Q4

REPORT INFORMATION
  Report Type: Spontaneous
  Country: US (occurrence: None)
  Receive Date: 20131121
  Receipt Date: 20131121
  Transmission Date: 20140711
  Serious: Yes (Hospitalization)
  Sender: FDA-Public Use
  Company Number: None

PATIENT
  Age: 66 Year
  Sex: Female
  Weight: 86.7 kg

DRUGS (10)
  1. INSULIN GLARGINE [Suspect]
     Indication: HYPERGLYCAEMIA
     Dosage: 12 UNITS QHS/BEDTIME SUBCUTANEOUS
     Route: 058
     Dates: start: 20111025
  2. ACETAMINOPHEN [Concomitant]
  3. ACETAMINOPHEN [Concomitant]
  4. AMLODIPINE [Concomitant]
  5. HEPARIN [Concomitant]
  6. HYDRALAZINE [Concomitant]
  7. INSULIN ASPART [Concomitant]
  8. MULTIVITAMIN [Concomitant]
  9. SEVELAMER [Concomitant]
  10. VALSARTAN [Concomitant]

REACTIONS (1)
  - Blood glucose decreased [None]
